FAERS Safety Report 25417763 (Version 1)
Quarter: 2025Q2

REPORT INFORMATION
  Report Type: Spontaneous
  Country: CN (occurrence: CN)
  Receive Date: 20250610
  Receipt Date: 20250610
  Transmission Date: 20250716
  Serious: Yes (Hospitalization, Other)
  Sender: AMNEAL
  Company Number: CN-AMNEAL PHARMACEUTICALS-2025-AMRX-02157

PATIENT
  Age: 12 Year
  Sex: Male
  Weight: 62 kg

DRUGS (1)
  1. CARBAMAZEPINE [Suspect]
     Active Substance: CARBAMAZEPINE
     Indication: Depression
     Route: 065

REACTIONS (3)
  - Loss of consciousness [Recovered/Resolved]
  - Peripheral nerve injury [Not Recovered/Not Resolved]
  - Osteonecrosis [Not Recovered/Not Resolved]
